FAERS Safety Report 15556760 (Version 1)
Quarter: 2018Q4

REPORT INFORMATION
  Report Type: Spontaneous
  Country: JP (occurrence: JP)
  Receive Date: 20181026
  Receipt Date: 20181026
  Transmission Date: 20190205
  Serious: Yes (Other)
  Sender: FDA-Public Use
  Company Number: JP-SA-2018SA151043

PATIENT
  Age: 69 Year
  Sex: Male
  Weight: 54 kg

DRUGS (5)
  1. JEVTANA [Suspect]
     Active Substance: CABAZITAXEL
     Indication: HORMONE-REFRACTORY PROSTATE CANCER
     Dosage: 20 MG/BODY/DAY
     Route: 041
     Dates: start: 20180327
  2. GONAX [Concomitant]
     Active Substance: DEGARELIX
     Indication: PROSTATE CANCER
     Dosage: 80 MG, Q4W
     Route: 058
     Dates: start: 20180330
  3. DECADRON [DEXAMETHASONE] [Concomitant]
     Dosage: 1 MG, BID
     Route: 048
     Dates: start: 201507, end: 20160205
  4. OLMESARTAN MEDOXOMIL. [Concomitant]
     Active Substance: OLMESARTAN MEDOXOMIL
     Indication: HYPERTENSION
     Dosage: 20 MG, QD
     Route: 048
     Dates: start: 201501
  5. DECADRON [DEXAMETHASONE] [Concomitant]
     Indication: PROSTATE CANCER
     Dosage: 1 MG, BID
     Route: 048
     Dates: start: 20170303

REACTIONS (2)
  - Blood pressure decreased [Recovered/Resolved]
  - Bradycardia [Recovered/Resolved]

NARRATIVE: CASE EVENT DATE: 20180327
